FAERS Safety Report 5123188-6 (Version None)
Quarter: 2006Q4

REPORT INFORMATION
  Report Type: 
  Country: None (occurrence: None)
  Receive Date: 20061005
  Receipt Date: 20060923
  Transmission Date: 20070319
  Serious: Yes (Life-Threatening, Other)
  Sender: FDA-Public Use
  Company Number: 2006082428

PATIENT
  Age: 60 Year
  Sex: Female
  Weight: 82.1011 kg

DRUGS (8)
  1. ELLENCE [Suspect]
     Indication: BREAST CANCER
     Dosage: 190 MG (190 MG, 1 IN 21 D), INTRAVENOUS
     Route: 042
     Dates: start: 20060629, end: 20060629
  2. LIPITOR [Concomitant]
  3. CELEXA [Concomitant]
  4. TAMOXIFEN CITRATE [Concomitant]
  5. CYTOXAN [Concomitant]
  6. DECADRON [Concomitant]
  7. ANTIEMETICS AND ANTINAUSEANS (ANTIEMETICS AND ANTINAUSEANTS) [Concomitant]
  8. PROMETHAZINE HYDROCHLORIDE TAB [Concomitant]

REACTIONS (5)
  - DYSPHAGIA [None]
  - ERYTHEMA [None]
  - PRURITUS [None]
  - THROAT TIGHTNESS [None]
  - URTICARIA [None]
